FAERS Safety Report 8528401-0 (Version None)
Quarter: 2012Q3

REPORT INFORMATION
  Report Type: 
  Country: None (occurrence: None)
  Receive Date: 20120722
  Receipt Date: 20120718
  Transmission Date: 20120928
  Serious: Yes (Death)
  Sender: FDA-Public Use
  Company Number: PHHY2012CN061700

PATIENT
  Age: 6 Year
  Sex: Male

DRUGS (11)
  1. SIMULECT [Suspect]
     Indication: PROPHYLAXIS AGAINST GRAFT VERSUS HOST DISEASE
     Dosage: 20 MG, TWO HOUR BEFORE TRANSPLANTATION
  2. METHOTREXATE [Suspect]
     Dosage: 10 MG/M2, ON DAY 3, 6 AND 11
  3. CYTARABINE [Concomitant]
     Indication: BONE MARROW CONDITIONING REGIMEN
     Dosage: 3 G/M2, BID AT DAY 5,6 AND 7 BEFORE TRANSPLANTATION
  4. SIMULECT [Suspect]
     Dosage: 20 MG, AT DAY 4 AFTER TRANSPLANTATION
  5. METHOTREXATE [Suspect]
     Indication: PROPHYLAXIS AGAINST GRAFT VERSUS HOST DISEASE
     Dosage: 15 MG/M2, ONE DAY BEFORE TRANSPLANTATION
  6. CYCLOSPORINE [Suspect]
     Dosage: 5 MG/KG, PER DAY
     Route: 048
  7. CYCLOSPORINE [Suspect]
     Indication: PROPHYLAXIS AGAINST GRAFT VERSUS HOST DISEASE
     Dosage: 1.5 MG/KG, PER DAY FOR 7 DAY
  8. CYCLOSPORINE [Suspect]
     Dosage: 2.5 MG/KG, FOR 18 HOUR 1-DAY BEFORE TRANSPLANTATION
     Route: 041
  9. ANTI-THYMOCYTE GLOBULIN NOS [Suspect]
     Indication: PROPHYLAXIS AGAINST GRAFT VERSUS HOST DISEASE
     Dosage: 5 MG/KG, FROM DAY 4 TO DAY 1 BEFORE TRANSPLANTATION
     Route: 041
  10. MYCOPHENOLATE MOFETIL [Suspect]
     Indication: PROPHYLAXIS AGAINST GRAFT VERSUS HOST DISEASE
     Dosage: 0.25-0.5 G, PER DAY; FROM DAY 7 OF TRANSPLANTATION TO DAY 100
  11. CYCLOPHOSPHAMIDE [Concomitant]
     Indication: BONE MARROW CONDITIONING REGIMEN
     Dosage: 45 MG/KG, PER DAY AT DAY 4 AND 5 BEFORE TRANSPLANTATION

REACTIONS (1)
  - ACUTE LYMPHOCYTIC LEUKAEMIA RECURRENT [None]
